FAERS Safety Report 16235002 (Version 1)
Quarter: 2019Q2

REPORT INFORMATION
  Report Type: Report from Study
  Country: US (occurrence: US)
  Receive Date: 20190424
  Receipt Date: 20190424
  Transmission Date: 20190711
  Serious: Yes (Death, Hospitalization)
  Sender: FDA-Public Use
  Company Number: US-ACTELION-A-US2017-150217

PATIENT
  Age: 64 Year
  Sex: Female

DRUGS (6)
  1. OPSUMIT [Suspect]
     Active Substance: MACITENTAN
     Indication: PULMONARY HYPERTENSION
     Dosage: 10 MG, QD
     Route: 048
     Dates: start: 20161026
  2. LYRICA [Concomitant]
     Active Substance: PREGABALIN
     Dosage: UNK
     Dates: start: 20170407
  3. PREDNISONE. [Concomitant]
     Active Substance: PREDNISONE
     Dosage: UNK
     Dates: start: 20170407
  4. ADCIRCA [Concomitant]
     Active Substance: TADALAFIL
     Dosage: 20 MG, UNK
     Dates: start: 20180104
  5. OXYGEN. [Concomitant]
     Active Substance: OXYGEN
     Dosage: 4 L, PER MIN
  6. ALBUTEROL. [Concomitant]
     Active Substance: ALBUTEROL

REACTIONS (32)
  - Oxygen consumption increased [Unknown]
  - Renal impairment [Unknown]
  - Death [Fatal]
  - Cardiac failure [Recovered/Resolved with Sequelae]
  - Oedema peripheral [Recovered/Resolved with Sequelae]
  - Dyspnoea exertional [Recovered/Resolved with Sequelae]
  - Pneumonia [Unknown]
  - Blood bilirubin increased [Unknown]
  - Dizziness [Unknown]
  - Blood glucose abnormal [Unknown]
  - Dyspnoea [Unknown]
  - Blood pressure increased [Unknown]
  - Sputum discoloured [Unknown]
  - Chills [Unknown]
  - Hypoxia [Recovering/Resolving]
  - Abdominal pain upper [Unknown]
  - Back pain [Unknown]
  - Interstitial lung disease [Recovered/Resolved]
  - Abdominal distension [Not Recovered/Not Resolved]
  - Cough [Unknown]
  - Hyperhidrosis [Unknown]
  - Cardiac failure congestive [Recovered/Resolved]
  - Weight increased [Unknown]
  - Oedema [Unknown]
  - Fluid overload [Not Recovered/Not Resolved]
  - Condition aggravated [Recovered/Resolved]
  - Blood alkaline phosphatase increased [Unknown]
  - Productive cough [Unknown]
  - Orthopnoea [Recovered/Resolved with Sequelae]
  - Haemoptysis [Unknown]
  - Chest discomfort [Recovering/Resolving]
  - Rhinorrhoea [Unknown]

NARRATIVE: CASE EVENT DATE: 201702
